FAERS Safety Report 20853828 (Version 3)
Quarter: 2022Q3

REPORT INFORMATION
  Report Type: Spontaneous
  Country: JP (occurrence: JP)
  Receive Date: 20220520
  Receipt Date: 20220701
  Transmission Date: 20221026
  Serious: Yes (Death, Hospitalization, Other)
  Sender: FDA-Public Use
  Company Number: JP-GLAXOSMITHKLINE-JP2022JPN079869

PATIENT

DRUGS (1)
  1. NUCALA [Suspect]
     Active Substance: MEPOLIZUMAB
     Indication: Eosinophilic granulomatosis with polyangiitis
     Dosage: 300 MG EVERY 4 WEEKS
     Dates: start: 20191025, end: 20220329

REACTIONS (3)
  - Sepsis [Fatal]
  - Eosinophilic granulomatosis with polyangiitis [Fatal]
  - Pneumonia [Not Recovered/Not Resolved]
